FAERS Safety Report 9610626 (Version 2)
Quarter: 2013Q4

REPORT INFORMATION
  Report Type: Report from Study
  Country: AR (occurrence: AR)
  Receive Date: 20131009
  Receipt Date: 20131009
  Transmission Date: 20140711
  Serious: Yes (Other)
  Sender: FDA-Public Use
  Company Number: PHHY2013AR096092

PATIENT
  Sex: Female

DRUGS (3)
  1. DIOVAN [Suspect]
     Indication: BLOOD PRESSURE MANAGEMENT
     Dosage: 2 DF (80 MG), DAILY
     Route: 048
  2. DIOVAN [Suspect]
     Dosage: 1 DF, (160 MG) 2 HALVES DAILY
     Route: 048
  3. DIOVAN [Suspect]
     Dosage: 2 DF (80 MG), PER DAY
     Route: 048

REACTIONS (4)
  - Thrombophlebitis [Recovered/Resolved]
  - Varicose vein [Recovered/Resolved]
  - General physical health deterioration [Unknown]
  - Wrong technique in drug usage process [Unknown]
